FAERS Safety Report 12579672 (Version 1)
Quarter: 2016Q3

REPORT INFORMATION
  Report Type: Report from Study
  Country: BR (occurrence: BR)
  Receive Date: 20160721
  Receipt Date: 20160721
  Transmission Date: 20161109
  Serious: Yes (Disabling, Other)
  Sender: FDA-Public Use
  Company Number: BR-ABBVIE-16K-020-1677020-00

PATIENT
  Age: 50 Year
  Sex: Female
  Weight: 75 kg

DRUGS (1)
  1. HUMIRA [Suspect]
     Active Substance: ADALIMUMAB
     Indication: ANKYLOSING SPONDYLITIS
     Route: 058
     Dates: start: 20140320, end: 20160506

REACTIONS (7)
  - Hypotonia [Unknown]
  - Spinal cord infarction [Recovering/Resolving]
  - Blood cholesterol increased [Recovered/Resolved]
  - Abasia [Unknown]
  - Urinary bladder atrophy [Unknown]
  - Intervertebral disc protrusion [Recovered/Resolved]
  - Blood triglycerides increased [Recovered/Resolved]

NARRATIVE: CASE EVENT DATE: 20160506
